FAERS Safety Report 7230861-2 (Version None)
Quarter: 2011Q1

REPORT INFORMATION
  Report Type: 
  Country: None (occurrence: None)
  Receive Date: 20110118
  Receipt Date: 20110106
  Transmission Date: 20110831
  Serious: Yes (Hospitalization)
  Sender: FDA-Public Use
  Company Number: AU-ROCHE-685172

PATIENT
  Sex: Male
  Weight: 87.6 kg

DRUGS (25)
  1. ONDANSETRON [Concomitant]
     Dosage: IV STAT
     Route: 048
     Dates: start: 20100210
  2. URAL [Concomitant]
     Indication: CYSTITIS
     Dosage: DOSE: 1 SACHET.
     Route: 048
     Dates: start: 20100129
  3. URAL [Concomitant]
     Route: 048
     Dates: start: 20100211, end: 20100216
  4. OLANZAPINE [Concomitant]
     Indication: ANTIDEPRESSANT THERAPY
     Dosage: FREQUENCY: PRN
     Route: 048
  5. OXALIPLATIN [Suspect]
     Dosage: DOSE SCHEDULE: 130 MG/ME2 OF D1 OF  3 WEEK,, LAST DOSE PRIOR TO SAE: 31 MAY 2010
     Route: 042
  6. PARACETAMOL [Concomitant]
     Route: 048
     Dates: start: 20100211, end: 20100216
  7. DEXAMETHASONE [Concomitant]
     Indication: NAUSEA
     Route: 048
     Dates: start: 20100105, end: 20100216
  8. ENDONE [Concomitant]
     Route: 048
     Dates: start: 20100129
  9. NITRAZEPAM [Concomitant]
     Indication: INSOMNIA
     Route: 048
     Dates: end: 20100615
  10. LOPERAMIDE [Concomitant]
     Dosage: I6 STAT DOSES
     Route: 048
     Dates: start: 20100211, end: 20100215
  11. OXYCONTIN [Concomitant]
     Indication: PAIN
     Route: 048
     Dates: start: 20100128
  12. ENDONE [Concomitant]
     Dosage: STAT DOSE
     Route: 048
     Dates: start: 20100213, end: 20100213
  13. MAXOLON [Concomitant]
     Route: 048
     Dates: start: 20100615
  14. ONDANSETRON [Concomitant]
     Dosage: 1 AS NECESSARY
     Route: 048
     Dates: start: 20100616, end: 20100618
  15. LOPERAMIDE [Concomitant]
     Indication: DIARRHOEA
     Route: 048
     Dates: start: 20100102
  16. CAPECITABINE [Suspect]
     Indication: RECTAL CANCER
     Dosage: LAST DOSE PRIOR TO SAE ON 8 FEB 2010.
     Route: 048
     Dates: start: 20100104
  17. ONDANSETRON [Concomitant]
     Indication: NAUSEA
     Route: 048
     Dates: start: 20100105
  18. LOPERAMIDE [Concomitant]
     Route: 048
     Dates: start: 20100211
  19. PARACETAMOL [Concomitant]
     Indication: PAIN
     Route: 048
     Dates: start: 20100101
  20. OXYCONTIN [Concomitant]
     Route: 048
     Dates: start: 20100210, end: 20100216
  21. MAXOLON [Concomitant]
     Indication: NAUSEA
     Dosage: FREQUENCY: PRN
     Route: 048
  22. CAPECITABINE [Suspect]
     Dosage: LAST DOSE PRIOR TO SAE 31 MAY 2010.  DOSING SCHEDULE: 1000 MG/M2 PO BID D1-D15 OF 3 WEEK CYCLE.
     Route: 048
     Dates: end: 20100208
  23. LOPERAMIDE [Concomitant]
     Route: 048
     Dates: end: 20100621
  24. OXALIPLATIN [Suspect]
     Indication: RECTAL CANCER
     Dosage: LAST DOSE PRIOR TO SAE ON 10 FEB 2010.
     Route: 042
     Dates: start: 20100604
  25. ONDANSETRON [Concomitant]
     Dosage: DOSE: ORAL
     Route: 048
     Dates: start: 20100210, end: 20100212

REACTIONS (6)
  - POST PROCEDURAL DIARRHOEA [None]
  - DUODENAL PERFORATION [None]
  - PROCEDURAL VOMITING [None]
  - NAUSEA [None]
  - DEHYDRATION [None]
  - DECREASED APPETITE [None]
